FAERS Safety Report 5852996-9 (Version None)
Quarter: 2008Q3

REPORT INFORMATION
  Report Type: 
  Country: None (occurrence: None)
  Receive Date: 20080821
  Receipt Date: 20080812
  Transmission Date: 20090109
  Serious: Yes (Hospitalization, Other)
  Sender: FDA-Public Use
  Company Number: JP-ABBOTT-08P-087-0470471-00

PATIENT
  Sex: Male

DRUGS (12)
  1. NORVIR [Suspect]
     Indication: HIV INFECTION
     Route: 048
     Dates: start: 20071210
  2. ATAZANAVIR [Suspect]
     Indication: HIV INFECTION
     Route: 048
     Dates: start: 20071210
  3. EMTRICITABINE W/TENOFOVIR [Suspect]
     Indication: HIV INFECTION
     Route: 048
     Dates: start: 20071210
  4. AZITHROMYCIN [Concomitant]
     Indication: MYCOBACTERIA TEST
     Route: 048
     Dates: start: 20070921
  5. CLARITHROMYCIN [Concomitant]
     Indication: MYCOBACTERIA TEST
     Route: 048
     Dates: start: 20071108
  6. FOSCARNET SODIUM [Concomitant]
     Indication: PNEUMONIA CYTOMEGALOVIRAL
     Route: 042
     Dates: start: 20071026, end: 20071115
  7. FOSCARNET SODIUM [Concomitant]
     Route: 042
     Dates: start: 20071217, end: 20071230
  8. ETHAMBUTOL HCL [Concomitant]
     Indication: MYCOBACTERIA TEST
     Route: 048
     Dates: start: 20071108
  9. LEVOFLOXACIN [Concomitant]
     Indication: MYCOBACTERIA TEST
     Route: 048
     Dates: start: 20071108
  10. ATOVAQUONE [Concomitant]
     Indication: CEREBRAL TOXOPLASMOSIS
     Route: 048
     Dates: start: 20071020
  11. LACTOBACILLUS ACIDOPHILUS [Concomitant]
     Indication: DIARRHOEA
     Route: 048
     Dates: start: 20071130
  12. REBAMIPIDE [Concomitant]
     Indication: GASTRITIS
     Route: 048
     Dates: start: 20071215

REACTIONS (5)
  - CYTOMEGALOVIRUS CHORIORETINITIS [None]
  - HYPOAESTHESIA [None]
  - IMMUNE RECONSTITUTION SYNDROME [None]
  - NEUROPATHY PERIPHERAL [None]
  - PLATELET COUNT DECREASED [None]
